FAERS Safety Report 22160194 (Version 1)
Quarter: 2023Q1

REPORT INFORMATION
  Report Type: Spontaneous
  Country: US (occurrence: None)
  Receive Date: 20230330
  Receipt Date: 20230330
  Transmission Date: 20230418
  Serious: Yes (Hospitalization)
  Sender: FDA-Public Use
  Company Number: None

PATIENT
  Sex: Female

DRUGS (5)
  1. IMATINIB [Suspect]
     Active Substance: IMATINIB
     Indication: Chronic myeloid leukaemia
     Dosage: FREQUENCY : DAILY;?
     Route: 048
     Dates: start: 20220228
  2. ATORVASTATIN [Concomitant]
  3. MIDODRINE [Concomitant]
  4. OLANZAPINE [Concomitant]
  5. TRAZODONE [Concomitant]

REACTIONS (3)
  - Syncope [None]
  - Fall [None]
  - Aspiration [None]
